FAERS Safety Report 10949651 (Version 1)
Quarter: 2015Q1

REPORT INFORMATION
  Report Type: Spontaneous
  Country: GB (occurrence: GB)
  Receive Date: 20150324
  Receipt Date: 20150324
  Transmission Date: 20150721
  Serious: Yes (Other)
  Sender: FDA-Public Use
  Company Number: GB-JNJFOC-20150315871

PATIENT
  Sex: Male

DRUGS (2)
  1. FENTANYL PATCHES [Concomitant]
     Active Substance: FENTANYL
     Route: 023
  2. SIMPONI [Suspect]
     Active Substance: GOLIMUMAB
     Indication: PRODUCT USED FOR UNKNOWN INDICATION
     Route: 058

REACTIONS (4)
  - Leukaemia [Unknown]
  - Renal disorder [Unknown]
  - Fatigue [Unknown]
  - Alopecia [Unknown]
